FAERS Safety Report 9021781 (Version 1)
Quarter: 2013Q1

REPORT INFORMATION
  Report Type: Spontaneous
  Country: US (occurrence: US)
  Receive Date: 20130119
  Receipt Date: 20130119
  Transmission Date: 20140127
  Serious: No
  Sender: FDA-Public Use
  Company Number: US-ALLERGAN-1208707US

PATIENT
  Sex: Male
  Weight: 87.08 kg

DRUGS (6)
  1. BOTOX? [Suspect]
     Indication: MUSCLE SPASTICITY
     Dosage: 900 UNITS, SINGLE
     Route: 030
     Dates: start: 20090409, end: 20090409
  2. BOTOX? [Suspect]
     Dosage: UNK UNK, SINGLE
     Route: 030
     Dates: start: 20090108, end: 20090108
  3. BOTOX? [Suspect]
     Dosage: UNK UNK, SINGLE
     Route: 030
     Dates: start: 20081001, end: 20081001
  4. BOTOX? [Suspect]
     Dosage: UNK UNK, SINGLE
     Route: 030
     Dates: start: 20080612, end: 20080612
  5. BOTOX? [Suspect]
     Dosage: UNK UNK, SINGLE
     Route: 030
     Dates: start: 20080313, end: 20080313
  6. NOVOLIN 70/30 [Concomitant]
     Indication: DIABETES MELLITUS
     Dosage: 40 UNITS, UNK

REACTIONS (1)
  - Erectile dysfunction [Recovered/Resolved]
